FAERS Safety Report 7006364-7 (Version None)
Quarter: 2010Q3

REPORT INFORMATION
  Report Type: 
  Country: None (occurrence: None)
  Receive Date: 20100921
  Receipt Date: 20100913
  Transmission Date: 20110219
  Serious: Yes (Other)
  Sender: FDA-Public Use
  Company Number: US-AMGEN-QUU438591

PATIENT
  Sex: Female

DRUGS (4)
  1. NPLATE [Suspect]
     Indication: IDIOPATHIC THROMBOCYTOPENIC PURPURA
     Dates: start: 20090707, end: 20090803
  2. CORTICOSTEROIDS [Concomitant]
     Dates: start: 20060727
  3. TACROLIMUS [Concomitant]
  4. IMMU-G [Concomitant]
     Dates: start: 20060828, end: 20090504

REACTIONS (1)
  - THERAPEUTIC RESPONSE DECREASED [None]
